FAERS Safety Report 6913985-6 (Version None)
Quarter: 2010Q3

REPORT INFORMATION
  Report Type: 
  Country: None (occurrence: None)
  Receive Date: 20100809
  Receipt Date: 20100726
  Transmission Date: 20110219
  Serious: Yes (Hospitalization, Other)
  Sender: FDA-Public Use
  Company Number: PHFR2010GB01719

PATIENT
  Age: 27 Year
  Sex: Male

DRUGS (10)
  1. CLOZAPINE [Suspect]
     Indication: SCHIZOPHRENIA
     Dosage: 200 MG, UNK
     Dates: start: 20070101
  2. CLOZAPINE [Suspect]
     Dosage: 100 MG, UNK
     Dates: start: 20100510, end: 20100512
  3. CLOZAPINE [Suspect]
     Dosage: 150 MG, UNK
     Dates: start: 20100513, end: 20100601
  4. CLOZAPINE [Suspect]
     Dosage: 175 MG, UNK
     Dates: start: 20100602, end: 20100603
  5. CLOZAPINE [Suspect]
     Dosage: 200 MG, UNK
     Dates: start: 20100604, end: 20100609
  6. CLOZAPINE [Suspect]
     Dosage: 250 MG, UNK
     Dates: start: 20100610, end: 20100616
  7. CLOZAPINE [Suspect]
     Dosage: 275 MG, UNK
     Dates: start: 20100617, end: 20100623
  8. CLOZAPINE [Suspect]
     Dosage: 300 MG, UNK
     Dates: start: 20100624, end: 20100630
  9. CLOZAPINE [Suspect]
     Dosage: 325 MG, UNK
     Route: 048
     Dates: start: 20100701, end: 20100707
  10. SERTRALINE HYDROCHLORIDE [Concomitant]
     Dosage: 100 MG, UNK

REACTIONS (8)
  - ASTHENIA [None]
  - BLOOD CREATINE PHOSPHOKINASE INCREASED [None]
  - BONE PAIN [None]
  - C-REACTIVE PROTEIN INCREASED [None]
  - ELECTROCARDIOGRAM T WAVE INVERSION [None]
  - FATIGUE [None]
  - MYOSITIS [None]
  - SINUS TACHYCARDIA [None]
